FAERS Safety Report 13074146 (Version 1)
Quarter: 2016Q4

REPORT INFORMATION
  Report Type: Spontaneous
  Country: HR (occurrence: HR)
  Receive Date: 20161229
  Receipt Date: 20161229
  Transmission Date: 20170207
  Serious: Yes (Hospitalization, Other)
  Sender: FDA-Public Use
  Company Number: HR-MYLANLABS-2016M1057673

PATIENT

DRUGS (2)
  1. BRUFEN? [Suspect]
     Active Substance: IBUPROFEN
     Indication: PRODUCT USED FOR UNKNOWN INDICATION
     Dosage: 7 TABLI A 400 MG
     Route: 048
     Dates: start: 20160927
  2. NORMABEL [Suspect]
     Active Substance: DIAZEPAM
     Indication: PRODUCT USED FOR UNKNOWN INDICATION
     Dosage: 2 TABLE A 5 MG
     Route: 048
     Dates: start: 20160927

REACTIONS (5)
  - Somnolence [Unknown]
  - Nephropathy toxic [None]
  - Intentional overdose [None]
  - Intentional overdose [Unknown]
  - Suicide attempt [Unknown]

NARRATIVE: CASE EVENT DATE: 20160927
